FAERS Safety Report 15768082 (Version 1)
Quarter: 2018Q4

REPORT INFORMATION
  Report Type: Spontaneous
  Country: TH (occurrence: TH)
  Receive Date: 20181227
  Receipt Date: 20181227
  Transmission Date: 20190205
  Serious: Yes (Death)
  Sender: FDA-Public Use
  Company Number: TH-MYLANLABS-2018M1096912

PATIENT
  Age: 62 Year
  Sex: Female

DRUGS (5)
  1. PERPHENAZINE. [Suspect]
     Active Substance: PERPHENAZINE
     Dosage: 50 DOSAGE FORM
  2. PERPHENAZINE. [Suspect]
     Active Substance: PERPHENAZINE
     Indication: BIPOLAR I DISORDER
     Dosage: 4 MILLIGRAM, BID
  3. AMITRIPTYLINE [Suspect]
     Active Substance: AMITRIPTYLINE
     Indication: BIPOLAR I DISORDER
     Dosage: 25 MILLIGRAM, BID
  4. MIDAZOLAM [Suspect]
     Active Substance: MIDAZOLAM HYDROCHLORIDE
     Indication: INSOMNIA
     Dosage: 1 DOSAGE FORM
  5. AMITRIPTYLINE [Suspect]
     Active Substance: AMITRIPTYLINE
     Dosage: 50 DOSAGE FORM

REACTIONS (4)
  - Cardiac arrest [Fatal]
  - Coma [Fatal]
  - Completed suicide [Fatal]
  - Intentional overdose [Fatal]
